FAERS Safety Report 12712368 (Version 1)
Quarter: 2016Q3

REPORT INFORMATION
  Report Type: Spontaneous
  Country: GB (occurrence: GB)
  Receive Date: 20160902
  Receipt Date: 20160902
  Transmission Date: 20161109
  Serious: Yes (Hospitalization)
  Sender: FDA-Public Use
  Company Number: GB-FRESENIUS KABI-FK201606016

PATIENT
  Age: 74 Year
  Sex: Female

DRUGS (6)
  1. BISOPROLOL [Concomitant]
     Active Substance: BISOPROLOL
  2. SIMVASTATIN. [Concomitant]
     Active Substance: SIMVASTATIN
  3. CODEINE PHOSPHATE [Concomitant]
     Active Substance: CODEINE PHOSPHATE
  4. WARFARIN [Concomitant]
     Active Substance: WARFARIN
  5. BENZYLPENICILLIN [Concomitant]
     Active Substance: PENICILLIN G
  6. LINEZOLID (MANUFACTURER UNKNOWN) [Suspect]
     Active Substance: LINEZOLID
     Indication: NECROTISING FASCIITIS
     Route: 042
     Dates: start: 20160723, end: 20160812

REACTIONS (1)
  - Neutrophil count decreased [Not Recovered/Not Resolved]

NARRATIVE: CASE EVENT DATE: 20160804
